FAERS Safety Report 6094377-1 (Version None)
Quarter: 2009Q1

REPORT INFORMATION
  Report Type: 
  Country: None (occurrence: None)
  Receive Date: 20090224
  Receipt Date: 20090210
  Transmission Date: 20090719
  Serious: Yes (Hospitalization)
  Sender: FDA-Public Use
  Company Number: 2009000396

PATIENT
  Age: 68 Year
  Sex: Male

DRUGS (8)
  1. ERLOTINIB (ERLOTINIB) (TABLET) (ERLOTINIB) [Suspect]
     Indication: LUNG ADENOCARCINOMA
     Dosage: (150 MG, QD), ORAL
     Route: 048
  2. AMLODIPINE BESYLATE [Concomitant]
  3. MICARDIS [Concomitant]
  4. HARNAL (TAMSULOSIN HYDROCHLORIDE) [Concomitant]
  5. BASEN (VOGLIBOSE) [Concomitant]
  6. GLUFAST [Concomitant]
  7. NOVOLIN N [Concomitant]
  8. GASMOTIN (MOSAPRIDE CITRATE) [Concomitant]

REACTIONS (9)
  - CARDIOMEGALY [None]
  - INFECTION [None]
  - INTERSTITIAL LUNG DISEASE [None]
  - LEFT VENTRICULAR DYSFUNCTION [None]
  - MALIGNANT NEOPLASM PROGRESSION [None]
  - PERICARDIAL EFFUSION [None]
  - PLEURAL EFFUSION [None]
  - PNEUMONIA VIRAL [None]
  - PYREXIA [None]
